FAERS Safety Report 7080140-1 (Version None)
Quarter: 2010Q4

REPORT INFORMATION
  Report Type: 
  Country: None (occurrence: None)
  Receive Date: 20101102
  Receipt Date: 20101025
  Transmission Date: 20110411
  Serious: Yes (Hospitalization)
  Sender: FDA-Public Use
  Company Number: AT-BRISTOL-MYERS SQUIBB COMPANY-15042807

PATIENT
  Age: 68 Year
  Sex: Male
  Weight: 79 kg

DRUGS (3)
  1. CETUXIMAB [Suspect]
     Indication: NON-SMALL CELL LUNG CANCER
     Dosage: 5 MG/ML; RECENT INF-17MAR10: TEMP DISC-17MAR2010
     Route: 042
     Dates: start: 20100310, end: 20100407
  2. CARBOPLATIN [Suspect]
     Indication: NON-SMALL CELL LUNG CANCER
     Dosage: 1DF=5AUC  REC INF+TEMP DIS:10MAR10 10MAR-7APR10(27D) UNK-7APR10:REDUCED 70%(ON DAY1OF21DAYCYC)
     Route: 042
     Dates: start: 20100310, end: 20100407
  3. GEMCITABINE [Suspect]
     Indication: NON-SMALL CELL LUNG CANCER
     Dosage: RECENT INF-17MAR10: TEMP DISC-17MAR2010 DAY 1,8 OF 21 DAY CYCLE
     Route: 042
     Dates: start: 20100310, end: 20100407

REACTIONS (2)
  - FATIGUE [None]
  - GENERAL PHYSICAL HEALTH DETERIORATION [None]
